FAERS Safety Report 25486813 (Version 1)
Quarter: 2025Q2

REPORT INFORMATION
  Report Type: Spontaneous
  Country: FR (occurrence: FR)
  Receive Date: 20250627
  Receipt Date: 20250627
  Transmission Date: 20250716
  Serious: Yes (Life-Threatening, Other)
  Sender: AUROBINDO
  Company Number: FR-AFSSAPS-AVLY2025000222

PATIENT
  Age: 22 Year
  Sex: Male

DRUGS (4)
  1. ALPRAZOLAM [Suspect]
     Active Substance: ALPRAZOLAM
     Indication: Product used for unknown indication
     Route: 048
  2. PREGABALIN [Concomitant]
     Active Substance: PREGABALIN
     Indication: Product used for unknown indication
     Route: 048
  3. PROMETHAZINE HYDROCHLORIDE [Concomitant]
     Active Substance: PROMETHAZINE HYDROCHLORIDE
     Indication: Product used for unknown indication
     Route: 048
  4. DOXYLAMINE SUCCINATE [Concomitant]
     Active Substance: DOXYLAMINE SUCCINATE
     Indication: Product used for unknown indication
     Route: 048

REACTIONS (3)
  - Coma [Recovered/Resolved]
  - Substance abuse [Recovering/Resolving]
  - Psychomotor hyperactivity [Recovered/Resolved]

NARRATIVE: CASE EVENT DATE: 20250424
